FAERS Safety Report 7741949-1 (Version None)
Quarter: 2011Q3

REPORT INFORMATION
  Report Type: 
  Country: None (occurrence: None)
  Receive Date: 20110907
  Receipt Date: 20110907
  Transmission Date: 20111222
  Serious: Yes (Hospitalization)
  Sender: FDA-Public Use
  Company Number: None

PATIENT
  Sex: Female
  Weight: 75 kg

DRUGS (2)
  1. ETOPOSIDE [Suspect]
     Dosage: 1140 MG
  2. CISPLATIN [Suspect]
     Dosage: 304 MG

REACTIONS (2)
  - HYPOPHAGIA [None]
  - OESOPHAGEAL PAIN [None]
